FAERS Safety Report 14498433 (Version 2)
Quarter: 2018Q1

REPORT INFORMATION
  Report Type: Spontaneous
  Country: US (occurrence: US)
  Receive Date: 20180207
  Receipt Date: 20180228
  Transmission Date: 20180509
  Serious: Yes (Hospitalization)
  Sender: FDA-Public Use
  Company Number: US-VERTEX PHARMACEUTICALS-2018-000919

PATIENT
  Age: 15 Year
  Sex: Male

DRUGS (9)
  1. LANSOPRAZOLE. [Concomitant]
     Active Substance: LANSOPRAZOLE
  2. FLOVENT HFA [Concomitant]
     Active Substance: FLUTICASONE PROPIONATE
  3. ACETYLCYSTEIN [Concomitant]
     Active Substance: ACETYLCYSTEINE
  4. MIRALAX [Concomitant]
     Active Substance: POLYETHYLENE GLYCOL 3350
  5. ORKAMBI [Suspect]
     Active Substance: IVACAFTOR\LUMACAFTOR
     Indication: CYSTIC FIBROSIS
     Dosage: 2 DOSAGE FORM (200/125 MG EACH), BID
     Route: 048
     Dates: start: 201612
  6. LEVALBUTEROL                       /01419301/ [Concomitant]
     Route: 055
  7. PULMOZYME [Concomitant]
     Active Substance: DORNASE ALFA
  8. NACL [Concomitant]
     Active Substance: SODIUM CHLORIDE
  9. COMPLETE MULTI VIT [Concomitant]

REACTIONS (1)
  - Gastrointestinal obstruction [Not Recovered/Not Resolved]

NARRATIVE: CASE EVENT DATE: 20180201
